FAERS Safety Report 10008767 (Version 1)
Quarter: 2014Q1

REPORT INFORMATION
  Report Type: Spontaneous
  Country: US (occurrence: US)
  Receive Date: 20140312
  Receipt Date: 20140312
  Transmission Date: 20141002
  Serious: No
  Sender: FDA-Public Use
  Company Number: US-INCYTE CORPORATION-2012IN000498

PATIENT
  Age: 73 Year
  Sex: Female

DRUGS (3)
  1. JAKAFI [Suspect]
     Indication: POLYCYTHAEMIA VERA
     Dosage: 10 MG, BID
     Route: 048
     Dates: start: 20120316
  2. AMLODIPINE BESYLATE W/BENAZEPRIL [Concomitant]
     Dosage: 10/20 MG, QD
     Route: 048
  3. ALLOPURINOL [Concomitant]
     Dosage: 100 MG, QD
     Route: 048

REACTIONS (2)
  - Abdominal discomfort [Unknown]
  - Platelet count decreased [Unknown]
